FAERS Safety Report 5985257-8 (Version None)
Quarter: 2008Q4

REPORT INFORMATION
  Report Type: 
  Country: None (occurrence: None)
  Receive Date: 20081203
  Receipt Date: 20081126
  Transmission Date: 20090506
  Serious: Yes (Hospitalization)
  Sender: FDA-Public Use
  Company Number: TAP2008Q00996

PATIENT
  Age: 70 Year
  Sex: Female
  Weight: 58.18 kg

DRUGS (8)
  1. PREVACID [Suspect]
     Indication: GASTROOESOPHAGEAL REFLUX DISEASE
     Dosage: 30 MG (30 MG),ORAL
     Route: 048
     Dates: start: 20080501
  2. SIMVASTIN (SIMVASTATIN) [Concomitant]
  3. LISINOPRIL [Concomitant]
  4. ADVAIR DISKUS 100/50 [Concomitant]
  5. ALBUTEROL [Concomitant]
  6. MULTIVITAMIN (MULTIVITAMIN /00831701/) [Concomitant]
  7. CALCIUM (CALCIUM) [Concomitant]
  8. VITAMIN D [Concomitant]

REACTIONS (5)
  - BASEDOW'S DISEASE [None]
  - BENIGN NEOPLASM OF THYROID GLAND [None]
  - DIZZINESS [None]
  - LOSS OF CONSCIOUSNESS [None]
  - NAUSEA [None]
